FAERS Safety Report 5869247-1 (Version None)
Quarter: 2008Q3

REPORT INFORMATION
  Report Type: 
  Country: None (occurrence: None)
  Receive Date: 20080903
  Receipt Date: 20080822
  Transmission Date: 20090109
  Serious: Yes (Other)
  Sender: FDA-Public Use
  Company Number: US-WYE-H05682408

PATIENT
  Sex: Female

DRUGS (4)
  1. EFFEXOR [Suspect]
     Dosage: 75 MG
  2. SERTRALINE [Suspect]
     Dosage: 75 MG
  3. SERTRALINE [Suspect]
     Dosage: 100 MG
  4. ZOLOFT [Suspect]
     Dosage: 50 MG

REACTIONS (2)
  - FEELING ABNORMAL [None]
  - VISION BLURRED [None]
